FAERS Safety Report 20865442 (Version 1)
Quarter: 2022Q2

REPORT INFORMATION
  Report Type: Spontaneous
  Country: US (occurrence: US)
  Receive Date: 20220524
  Receipt Date: 20220524
  Transmission Date: 20220721
  Serious: No
  Sender: FDA-Public Use
  Company Number: US-AMGEN-USASP2022087272

PATIENT
  Age: 75 Year
  Sex: Male

DRUGS (5)
  1. APREMILAST [Suspect]
     Active Substance: APREMILAST
     Indication: Pityriasis rubra pilaris
     Dosage: 30 MILLIGRAM, BID
     Route: 065
  2. APREMILAST [Suspect]
     Active Substance: APREMILAST
     Indication: Off label use
  3. ACITRETIN [Concomitant]
     Active Substance: ACITRETIN
     Dosage: 25 MILLIGRAM, BID
  4. ACITRETIN [Concomitant]
     Active Substance: ACITRETIN
     Dosage: 25 MILLIGRAM, QD
  5. TRIAMCINOLONE [Concomitant]
     Active Substance: TRIAMCINOLONE
     Dosage: UNK

REACTIONS (4)
  - Depression [Unknown]
  - Pityriasis rubra pilaris [Recovering/Resolving]
  - Ectropion [Unknown]
  - Off label use [Unknown]
